FAERS Safety Report 10876562 (Version 1)
Quarter: 2015Q1

REPORT INFORMATION
  Report Type: Spontaneous
  Country: IT (occurrence: IT)
  Receive Date: 20150301
  Receipt Date: 20150301
  Transmission Date: 20150721
  Serious: Yes (Other)
  Sender: FDA-Public Use
  Company Number: IT-TEVA-542233ISR

PATIENT
  Age: 4 Year
  Sex: Female

DRUGS (6)
  1. CYCLOPHOSPHAMIDE. [Suspect]
     Active Substance: CYCLOPHOSPHAMIDE
     Indication: LUPUS NEPHRITIS
     Dosage: 2.7 MG/KG DAILY; 2.7 MG/KG PER DAY; TOTAL AMOUNT WAS 486 MG (40.5/KG BODY WEIGHT)
     Route: 048
  2. MYCOPHENOLATE MOFETIL. [Suspect]
     Active Substance: MYCOPHENOLATE MOFETIL
     Indication: LUPUS NEPHRITIS
     Dosage: 20 MG/KG DAILY; 20 MG/KG PER DAY
     Route: 065
  3. RITUXIMAB [Suspect]
     Active Substance: RITUXIMAB
     Indication: LUPUS NEPHRITIS
     Dosage: 1 G/1.73 M2
     Route: 050
  4. CICLOSPORIN [Suspect]
     Active Substance: CYCLOSPORINE
     Indication: LUPUS NEPHRITIS
     Dosage: 5 MG/KG DAILY; 5 MG/KG PER DAY
     Route: 065
  5. METHYLPREDNISOLONE. [Concomitant]
     Active Substance: METHYLPREDNISOLONE
     Indication: SYSTEMIC LUPUS ERYTHEMATOSUS
     Dosage: 3 IV PULSES OF 10 MG/KG TWICE
     Route: 042
  6. PREDNISONE. [Concomitant]
     Active Substance: PREDNISONE
     Indication: SYSTEMIC LUPUS ERYTHEMATOSUS
     Dosage: 1 MG/KG PER DAY
     Route: 065

REACTIONS (5)
  - Leukopenia [Recovered/Resolved]
  - Abdominal discomfort [Unknown]
  - Rash [Unknown]
  - Haemolytic uraemic syndrome [Recovered/Resolved]
  - Hypotension [Unknown]
